FAERS Safety Report 17816621 (Version 1)
Quarter: 2020Q2

REPORT INFORMATION
  Report Type: Spontaneous
  Country: FR (occurrence: FR)
  Receive Date: 20200522
  Receipt Date: 20200522
  Transmission Date: 20200714
  Serious: Yes (Death, Other)
  Sender: FDA-Public Use
  Company Number: FR-MYLANLABS-2020M1049999

PATIENT
  Age: 27 Year
  Sex: Male

DRUGS (5)
  1. PREDNISONE. [Suspect]
     Active Substance: PREDNISONE
     Indication: CUTANEOUS T-CELL LYMPHOMA
     Dosage: FOUR CURES
     Route: 065
  2. DOXORUBICIN HYDROCHLORIDE. [Suspect]
     Active Substance: DOXORUBICIN HYDROCHLORIDE
     Indication: CUTANEOUS T-CELL LYMPHOMA
     Dosage: FOUR CURES
     Route: 065
  3. ETOPOSIDE. [Suspect]
     Active Substance: ETOPOSIDE
     Indication: CUTANEOUS T-CELL LYMPHOMA
     Dosage: FOUR CURES
     Route: 065
  4. VINCRISTINE SULFATE. [Suspect]
     Active Substance: VINCRISTINE SULFATE
     Indication: CUTANEOUS T-CELL LYMPHOMA
     Dosage: FOUR CURES
     Route: 065
  5. CYCLOPHOSPHAMIDE. [Suspect]
     Active Substance: CYCLOPHOSPHAMIDE
     Indication: CUTANEOUS T-CELL LYMPHOMA
     Dosage: FOUR CURES
     Route: 065

REACTIONS (1)
  - Therapeutic product effect incomplete [Fatal]
